FAERS Safety Report 25646581 (Version 2)
Quarter: 2025Q3

REPORT INFORMATION
  Report Type: Report from Study
  Country: US (occurrence: US)
  Receive Date: 20250805
  Receipt Date: 20250831
  Transmission Date: 20251020
  Serious: Yes (Hospitalization, Other)
  Sender: ABBVIE
  Company Number: US-ABBVIE-6400053

PATIENT
  Age: 67 Year
  Sex: Male
  Weight: 93.439 kg

DRUGS (1)
  1. SKYRIZI [Suspect]
     Active Substance: RISANKIZUMAB-RZAA
     Indication: Psoriasis
     Route: 058
     Dates: start: 20250214

REACTIONS (3)
  - Gastrointestinal haemorrhage [Recovering/Resolving]
  - Anaemia [Not Recovered/Not Resolved]
  - Intestinal perforation [Recovering/Resolving]

NARRATIVE: CASE EVENT DATE: 20250701
